FAERS Safety Report 19019988 (Version 6)
Quarter: 2021Q3

REPORT INFORMATION
  Report Type: Spontaneous
  Country: US (occurrence: US)
  Receive Date: 20210317
  Receipt Date: 20210930
  Transmission Date: 20211014
  Serious: Yes (Hospitalization, Other)
  Sender: FDA-Public Use
  Company Number: US-GLAXOSMITHKLINE-US2021060504

PATIENT
  Age: 76 Year
  Sex: Female

DRUGS (1)
  1. NUCALA [Suspect]
     Active Substance: MEPOLIZUMAB
     Indication: ASTHMA
     Dosage: 100 MG, Z (28 DAY)
     Route: 042
     Dates: start: 2021

REACTIONS (7)
  - Hospitalisation [Unknown]
  - Product dose omission issue [Unknown]
  - Cellulitis [Not Recovered/Not Resolved]
  - Product complaint [Unknown]
  - Dyspnoea [Unknown]
  - Exposure via skin contact [Unknown]
  - Accidental exposure to product [Unknown]

NARRATIVE: CASE EVENT DATE: 20210902
